FAERS Safety Report 7962013-2 (Version None)
Quarter: 2011Q4

REPORT INFORMATION
  Report Type: 
  Country: None (occurrence: None)
  Receive Date: 20111207
  Receipt Date: 20111123
  Transmission Date: 20120403
  Serious: Yes (Congenital Anomaly, Other)
  Sender: FDA-Public Use
  Company Number: US-UCBSA-043871

PATIENT
  Sex: Male
  Weight: 2.64 kg

DRUGS (12)
  1. MULTI-VITAMINS [Concomitant]
     Route: 063
     Dates: start: 20110227
  2. KEPPRA [Suspect]
     Dosage: TOTAL DAILY DOSE: 3000 MG
     Route: 063
     Dates: start: 20110227
  3. FOLIC ACID [Concomitant]
     Route: 063
     Dates: start: 20110227
  4. ASPIRIN [Concomitant]
     Indication: METHYLENETETRAHYDROFOLATE REDUCTASE POLYMORPHISM
     Route: 064
     Dates: start: 20100101, end: 20110227
  5. KEPPRA [Suspect]
     Dosage: TOTAL DAILY DOSE: 3000 MG
     Route: 064
     Dates: start: 20100101, end: 20110227
  6. MULTI-VITAMINS [Concomitant]
     Indication: PREGNANCY
     Route: 064
     Dates: start: 20100101, end: 20110227
  7. LOVENOX [Concomitant]
     Indication: METHYLENETETRAHYDROFOLATE REDUCTASE POLYMORPHISM
     Route: 064
     Dates: start: 20100101, end: 20110227
  8. LOVENOX [Concomitant]
     Route: 063
     Dates: start: 20110227
  9. CLONAZEPAM [Concomitant]
     Indication: CONVULSION
     Dosage: TOTAL DAILY DOSE: 50 MG
     Route: 064
     Dates: start: 20100101, end: 20110227
  10. FOLIC ACID [Concomitant]
     Indication: PREGNANCY
     Route: 064
     Dates: start: 20100101, end: 20110227
  11. CLONAZEPAM [Concomitant]
     Dosage: TOTAL DAILY DOSE: 50 MG
     Route: 063
     Dates: start: 20110227
  12. ASPIRIN [Concomitant]
     Route: 063
     Dates: start: 20110227

REACTIONS (4)
  - FOETAL EXPOSURE DURING PREGNANCY [None]
  - PENIS DISORDER [None]
  - EXPOSURE DURING BREAST FEEDING [None]
  - MICROCEPHALY [None]
